FAERS Safety Report 17753047 (Version 1)
Quarter: 2020Q2

REPORT INFORMATION
  Report Type: Spontaneous
  Country: AU (occurrence: AU)
  Receive Date: 20200506
  Receipt Date: 20200506
  Transmission Date: 20200714
  Serious: Yes (Hospitalization)
  Sender: FDA-Public Use
  Company Number: NVSC2020AU042373

PATIENT
  Age: 16 Year
  Sex: Female
  Weight: 45 kg

DRUGS (4)
  1. ATENOLOL SANDOZ 25 MG TABLETIT [Suspect]
     Active Substance: ATENOLOL
     Indication: LONG QT SYNDROME
     Dosage: 25 MG, BID
     Route: 065
     Dates: start: 201706
  2. CEFALEXIN SANDOZ [Suspect]
     Active Substance: CEPHALEXIN
     Indication: SINUSITIS
     Dosage: UNK
     Route: 065
     Dates: start: 201912
  3. CEFALEXIN SANDOZ [Suspect]
     Active Substance: CEPHALEXIN
     Dosage: UNK
     Route: 065
     Dates: start: 202003
  4. LEVLEN [Concomitant]
     Active Substance: ETHINYL ESTRADIOL\LEVONORGESTREL
     Indication: PRODUCT USED FOR UNKNOWN INDICATION
     Dosage: UNK UNK, QD
     Route: 065

REACTIONS (7)
  - Gait disturbance [Unknown]
  - Viral myositis [Unknown]
  - Hypotension [Unknown]
  - Dizziness [Unknown]
  - Pain in extremity [Unknown]
  - Fatigue [Unknown]
  - Myalgia [Unknown]
